FAERS Safety Report 6328404-0 (Version None)
Quarter: 2009Q3

REPORT INFORMATION
  Report Type: 
  Country: None (occurrence: None)
  Receive Date: 20090825
  Receipt Date: 20090317
  Transmission Date: 20100115
  Serious: No
  Sender: FDA-Public Use
  Company Number: US-ABBOTT-09P-163-0563217-00

PATIENT
  Sex: Female
  Weight: 56.296 kg

DRUGS (2)
  1. SYNTHROID [Suspect]
     Indication: THYROID DISORDER
     Dates: start: 20090224
  2. LIBRIUM [Concomitant]
     Indication: NERVOUSNESS

REACTIONS (1)
  - NERVOUSNESS [None]
